FAERS Safety Report 4874698-8 (Version None)
Quarter: 2006Q1

REPORT INFORMATION
  Report Type: 
  Country: None (occurrence: None)
  Receive Date: 20060106
  Receipt Date: 20050606
  Transmission Date: 20060701
  Serious: Yes (Hospitalization, Disabling)
  Sender: FDA-Public Use
  Company Number: US-MERCK-0506USA01046

PATIENT
  Age: 72 Year
  Sex: Male
  Weight: 101 kg

DRUGS (36)
  1. VIOXX [Suspect]
     Indication: OSTEOARTHRITIS
     Route: 048
     Dates: start: 20000601, end: 20040901
  2. VIOXX [Suspect]
     Indication: CARPAL TUNNEL SYNDROME
     Route: 048
     Dates: start: 20000601, end: 20040901
  3. GLUCOTROL [Concomitant]
     Indication: DIABETES MELLITUS
     Route: 065
     Dates: end: 20020323
  4. INSULIN [Concomitant]
     Indication: DIABETES MELLITUS
     Route: 065
  5. ASPIRIN [Concomitant]
     Indication: CARDIAC DISORDER
     Route: 065
     Dates: start: 19910101
  6. ZESTRIL [Concomitant]
     Indication: HYPERTENSION
     Route: 065
  7. NORVASC [Concomitant]
     Indication: CARDIAC DISORDER
     Route: 065
     Dates: end: 20020416
  8. NORVASC [Concomitant]
     Indication: HYPERTENSION
     Route: 065
     Dates: end: 20020416
  9. ATENOLOL [Concomitant]
     Indication: HYPERTENSION
     Route: 065
     Dates: start: 19980101, end: 20021201
  10. HYDROCHLOROTHIAZIDE AND TRIAMTERENE [Concomitant]
     Indication: HYPERTENSION
     Route: 065
     Dates: start: 19990101
  11. MOTRIN [Concomitant]
     Indication: ARTHRITIS
     Route: 065
     Dates: start: 20000101
  12. MOTRIN [Concomitant]
     Indication: GOUT
     Route: 065
     Dates: start: 20000101
  13. CELEBREX [Concomitant]
     Indication: ARTHRITIS
     Route: 065
     Dates: start: 19990601
  14. CELEBREX [Concomitant]
     Indication: GOUT
     Route: 065
     Dates: start: 19990601
  15. LIPITOR [Concomitant]
     Indication: BLOOD CHOLESTEROL INCREASED
     Route: 065
     Dates: start: 19970101
  16. LESCOL [Concomitant]
     Indication: BLOOD CHOLESTEROL INCREASED
     Route: 065
  17. ZONALON [Concomitant]
     Route: 065
  18. KEFLEX [Concomitant]
     Indication: INFECTION
     Route: 065
  19. KLOR-CON [Concomitant]
     Route: 065
  20. LACTULOSE [Concomitant]
     Indication: CONSTIPATION
     Route: 065
  21. AMARYL [Concomitant]
     Indication: DIABETES MELLITUS
     Route: 065
  22. AMITRIPTYLINE HYDROCHLORIDE [Concomitant]
     Indication: DEPRESSION
     Route: 065
  23. BROMAXEFED DM RF [Concomitant]
     Indication: COUGH
     Route: 065
  24. CIALIS [Concomitant]
     Indication: ERECTILE DYSFUNCTION
     Route: 065
  25. DEPO-MEDROL [Concomitant]
     Indication: HYPERSENSITIVITY
     Route: 065
  26. DOXYCYCLINE [Concomitant]
     Indication: INFECTION
     Route: 065
  27. FAMOTIDINE [Concomitant]
     Indication: GASTROOESOPHAGEAL REFLUX DISEASE
     Route: 065
  28. FLOXIN [Concomitant]
     Indication: INFECTION
     Route: 065
  29. FOLGARD [Concomitant]
     Route: 065
  30. GLUCOPHAGE [Concomitant]
     Indication: DIABETES MELLITUS
     Route: 065
  31. VIAGRA [Concomitant]
     Indication: ERECTILE DYSFUNCTION
     Route: 065
  32. XALATAN [Concomitant]
     Indication: INTRAOCULAR PRESSURE TEST
     Route: 065
  33. XALATAN [Concomitant]
     Indication: GLAUCOMA
     Route: 065
  34. ZADITOR [Concomitant]
     Indication: EYE PRURITUS
     Route: 065
  35. ZADITOR [Concomitant]
     Indication: EYE SWELLING
     Route: 065
  36. ZANTAC [Concomitant]
     Indication: GASTROOESOPHAGEAL REFLUX DISEASE
     Route: 065

REACTIONS (28)
  - ACUTE MYOCARDIAL INFARCTION [None]
  - ARTERIOSCLEROSIS CORONARY ARTERY [None]
  - BENIGN PROSTATIC HYPERPLASIA [None]
  - CARDIAC FAILURE CONGESTIVE [None]
  - CARPAL TUNNEL SYNDROME [None]
  - CHEST DISCOMFORT [None]
  - CHEST PAIN [None]
  - CONSTIPATION [None]
  - CORONARY ARTERY OCCLUSION [None]
  - COUGH [None]
  - DIABETIC NEUROPATHY [None]
  - DYSPNOEA [None]
  - FLUID OVERLOAD [None]
  - GASTROINTESTINAL DISORDER [None]
  - HYPERCHOLESTEROLAEMIA [None]
  - HYPERGLYCAEMIA [None]
  - HYPERTENSION [None]
  - INTERVERTEBRAL DISC DISORDER [None]
  - LUMBAR SPINAL STENOSIS [None]
  - MUSCLE ATROPHY [None]
  - MUSCULOSKELETAL STIFFNESS [None]
  - PARKINSONISM [None]
  - PROSTATE CANCER [None]
  - SINUS BRADYCARDIA [None]
  - SPINAL COLUMN STENOSIS [None]
  - SYNOVIAL CYST [None]
  - THERAPEUTIC RESPONSE DECREASED [None]
  - WEIGHT INCREASED [None]
